FAERS Safety Report 5599881-8 (Version None)
Quarter: 2008Q1

REPORT INFORMATION
  Report Type: 
  Country: None (occurrence: None)
  Receive Date: 20080123
  Receipt Date: 20080109
  Transmission Date: 20080703
  Serious: Yes (Hospitalization)
  Sender: FDA-Public Use
  Company Number: JP-AMGEN-US257665

PATIENT
  Sex: Female
  Weight: 45 kg

DRUGS (2)
  1. ENBREL [Suspect]
     Indication: RHEUMATOID ARTHRITIS
     Route: 058
     Dates: start: 20070904
  2. PREDNISOLONE [Suspect]
     Indication: DRUG USE FOR UNKNOWN INDICATION
     Dosage: 5-10 MG DAILY
     Route: 048

REACTIONS (4)
  - DRUG HYPERSENSITIVITY [None]
  - RASH [None]
  - RENAL FAILURE ACUTE [None]
  - URINARY TRACT INFECTION [None]
